FAERS Safety Report 14644140 (Version 1)
Quarter: 2018Q1

REPORT INFORMATION
  Report Type: Spontaneous
  Country: US (occurrence: US)
  Receive Date: 20180315
  Receipt Date: 20180315
  Transmission Date: 20180509
  Serious: No
  Sender: FDA-Public Use
  Company Number: US-B.I. PHARMACEUTICALS,INC./RIDGEFIELD-2018-BI-013955

PATIENT
  Sex: Male

DRUGS (2)
  1. OFEV [Suspect]
     Active Substance: NINTEDANIB
     Indication: IDIOPATHIC PULMONARY FIBROSIS
     Dosage: BID;  FORM STRENGTH: 150MG; FORMULATION: CAPSULE? ADMINISTRATION CORRECT? NR(NOT REPORTED) ?ACTION(S
     Route: 048
     Dates: end: 20180225
  2. OFEV [Suspect]
     Active Substance: NINTEDANIB
     Dosage: BID;  FORM STRENGTH: 100 MG; FORMULATION: CAPSULE? ADMINISTRATION CORRECT? NR(NOT REPORTED) ?ACTION(
     Route: 048
     Dates: start: 20180226

REACTIONS (5)
  - Chest pain [Not Recovered/Not Resolved]
  - Haemorrhoidal haemorrhage [Not Recovered/Not Resolved]
  - Back pain [Not Recovered/Not Resolved]
  - Haemoptysis [Not Recovered/Not Resolved]
  - Nausea [Not Recovered/Not Resolved]
